FAERS Safety Report 20112492 (Version 1)
Quarter: 2021Q4

REPORT INFORMATION
  Report Type: Spontaneous
  Country: IT (occurrence: IT)
  Receive Date: 20211125
  Receipt Date: 20211125
  Transmission Date: 20220303
  Serious: No
  Sender: FDA-Public Use
  Company Number: IT-LUPIN PHARMACEUTICALS INC.-2021-22928

PATIENT
  Sex: Female

DRUGS (9)
  1. METRONIDAZOLE [Suspect]
     Active Substance: METRONIDAZOLE
     Indication: Encephalopathy
     Dosage: 30 MILLIGRAM/KILOGRAM, QD
     Route: 065
  2. TACROLIMUS [Concomitant]
     Active Substance: TACROLIMUS
     Indication: Immunosuppressant drug therapy
     Dosage: UNK
     Route: 065
  3. ACETYLCYSTEINE [Concomitant]
     Active Substance: ACETYLCYSTEINE
     Indication: Encephalopathy
     Dosage: 100 MILLIGRAM/KILOGRAM, QD
     Route: 065
  4. CARNITINE [Concomitant]
     Active Substance: CARNITINE
     Indication: Encephalopathy
     Dosage: 100 MILLIGRAM/KILOGRAM
     Route: 065
  5. CARNITINE [Concomitant]
     Active Substance: CARNITINE
     Dosage: 30 MILLIGRAM/KILOGRAM, QD
     Route: 065
  6. CEFIXIME [Concomitant]
     Active Substance: CEFIXIME
     Indication: Antibiotic therapy
     Dosage: UNK
     Route: 065
  7. CIPROFLOXACIN [Concomitant]
     Active Substance: CIPROFLOXACIN
     Indication: Antibiotic therapy
     Dosage: UNK
     Route: 065
  8. RIFAXIMIN [Concomitant]
     Active Substance: RIFAXIMIN
     Indication: Antibiotic therapy
     Dosage: UNK
     Route: 065
  9. NYSTATIN [Concomitant]
     Active Substance: NYSTATIN
     Indication: Antibiotic therapy
     Dosage: UNK
     Route: 065

REACTIONS (1)
  - Abdominal pain [Unknown]
